FAERS Safety Report 9456004 (Version 2)
Quarter: 2013Q4

REPORT INFORMATION
  Report Type: Spontaneous
  Country: AU (occurrence: None)
  Receive Date: 20130808
  Receipt Date: 20131015
  Transmission Date: 20140711
  Serious: Yes (Other)
  Sender: FDA-Public Use
  Company Number: 2013AU002217

PATIENT
  Age: 64 Year
  Sex: Male
  Weight: 90 kg

DRUGS (8)
  1. PONATINIB (AP24534) TABLET [Suspect]
     Indication: CHRONIC MYELOID LEUKAEMIA
     Route: 048
     Dates: start: 20110520
  2. FOLIC ACID (FOLIC ACID) [Concomitant]
  3. OSTELIN (ERGOCALCIFEROL) [Concomitant]
  4. PROGOUT (ALLOPURINOL) [Concomitant]
  5. OMEPRAZOLE (OMEPRAZOLE) [Concomitant]
  6. CENTURUM (MINERALS NOS, VITAMINS NOS) [Concomitant]
  7. PARACETAMOL (PARACETAMOL) [Concomitant]
  8. COVERSYL (PERINDOPRIL ERBUMINE) [Concomitant]

REACTIONS (1)
  - Cerebrovascular accident [None]
